FAERS Safety Report 19277991 (Version 1)
Quarter: 2021Q2

REPORT INFORMATION
  Report Type: Spontaneous
  Country: US (occurrence: US)
  Receive Date: 20210519
  Receipt Date: 20210519
  Transmission Date: 20210717
  Serious: Yes (Hospitalization)
  Sender: FDA-Public Use
  Company Number: None

PATIENT
  Sex: Female

DRUGS (10)
  1. TRAMADOL HCL [Concomitant]
     Active Substance: TRAMADOL HYDROCHLORIDE
  2. CEPHALEXIN. [Concomitant]
     Active Substance: CEPHALEXIN
  3. HYDROCO/APAP [Concomitant]
     Active Substance: ACETAMINOPHEN\HYDROCODONE
  4. ASPIRIN. [Concomitant]
     Active Substance: ASPIRIN
  5. COLESEVELAM [Concomitant]
     Active Substance: COLESEVELAM
  6. DOXYCYCL HYC [Concomitant]
     Active Substance: DOXYCYCLINE HYCLATE
  7. DOK [Concomitant]
     Active Substance: DOCUSATE SODIUM
  8. ONDANSETRON [Concomitant]
     Active Substance: ONDANSETRON
  9. ACYCLOVIR. [Concomitant]
     Active Substance: ACYCLOVIR
  10. XELJANZ [Suspect]
     Active Substance: TOFACITINIB CITRATE
     Indication: PSORIATIC ARTHROPATHY
     Route: 048
     Dates: start: 20190418

REACTIONS (4)
  - Limb injury [None]
  - Therapy interrupted [None]
  - Condition aggravated [None]
  - Rash [None]
